FAERS Safety Report 4489379-2 (Version None)
Quarter: 2004Q4

REPORT INFORMATION
  Report Type: 
  Country: None (occurrence: None)
  Receive Date: 20041101
  Receipt Date: 20041019
  Transmission Date: 20050328
  Serious: Yes (Life-Threatening)
  Sender: FDA-Public Use
  Company Number: 200413246JP

PATIENT
  Age: 82 Year
  Sex: Male
  Weight: 41.5 kg

DRUGS (1)
  1. TAXOTERE [Suspect]
     Route: 013
     Dates: start: 20041015, end: 20041015

REACTIONS (3)
  - EMBOLISM [None]
  - HYPOAESTHESIA [None]
  - LOSS OF CONSCIOUSNESS [None]
